FAERS Safety Report 5290703-1 (Version None)
Quarter: 2007Q2

REPORT INFORMATION
  Report Type: 
  Country: None (occurrence: None)
  Receive Date: 20070409
  Receipt Date: 20070325
  Transmission Date: 20071010
  Serious: Yes (Hospitalization, Other)
  Sender: FDA-Public Use
  Company Number: US-AMGEN-US216543

PATIENT
  Sex: Female
  Weight: 56.8 kg

DRUGS (2)
  1. ENBREL [Suspect]
     Indication: RHEUMATOID ARTHRITIS
     Route: 058
     Dates: start: 19980901
  2. ARAVA [Concomitant]
     Dates: start: 20060401

REACTIONS (7)
  - ANAL CANCER [None]
  - ANAL FISSURE [None]
  - HAEMORRHOIDS [None]
  - ILL-DEFINED DISORDER [None]
  - INJECTION SITE INFECTION [None]
  - METASTASES TO LYMPH NODES [None]
  - RHEUMATOID ARTHRITIS [None]
